FAERS Safety Report 8520835 (Version 3)
Quarter: 2013Q2

REPORT INFORMATION
  Report Type: Spontaneous
  Country: IT (occurrence: IT)
  Receive Date: 20120419
  Receipt Date: 20130409
  Transmission Date: 20140414
  Serious: Yes (Other)
  Sender: FDA-Public Use
  Company Number: IT-BRISTOL-MYERS SQUIBB COMPANY-16520363

PATIENT
  Age: 34 Year
  Sex: Male

DRUGS (4)
  1. VEPESID [Suspect]
     Indication: TESTICULAR GERM CELL CANCER
     Route: 042
     Dates: start: 20120224
  2. CISPLATIN [Suspect]
     Route: 042
     Dates: start: 20120224
  3. BLEOMYCIN SULFATE [Suspect]
     Indication: TESTICULAR GERM CELL CANCER
     Route: 042
     Dates: start: 20120224
  4. PLASIL [Concomitant]

REACTIONS (4)
  - Neutropenia [Recovering/Resolving]
  - Nausea [Unknown]
  - Vomiting [Unknown]
  - Tinnitus [Unknown]
